FAERS Safety Report 9495677 (Version 1)
Quarter: 2013Q3

REPORT INFORMATION
  Report Type: Report from Study
  Country: US (occurrence: US)
  Receive Date: 20130903
  Receipt Date: 20130903
  Transmission Date: 20140515
  Serious: Yes (Hospitalization)
  Sender: FDA-Public Use
  Company Number: US-BRISTOL-MYERS SQUIBB COMPANY-19234335

PATIENT
  Age: 41 Year
  Sex: Male
  Weight: 92.3 kg

DRUGS (1)
  1. IPILIMUMAB [Suspect]
     Indication: MALIGNANT MELANOMA
     Dosage: TOTAL DOSE-1004MG?LAST DOSE-19JUL13
     Route: 042
     Dates: start: 20130628

REACTIONS (2)
  - Colitis [Unknown]
  - Dehydration [Recovering/Resolving]
